FAERS Safety Report 12615354 (Version 1)
Quarter: 2016Q3

REPORT INFORMATION
  Report Type: Spontaneous
  Country: GB (occurrence: GB)
  Receive Date: 20160802
  Receipt Date: 20160802
  Transmission Date: 20161109
  Serious: Yes (Hospitalization)
  Sender: FDA-Public Use
  Company Number: GB-SEBELA IRELAND LIMITED-2016SEB00298

PATIENT

DRUGS (1)
  1. AZATHIOPRINE. [Suspect]
     Active Substance: AZATHIOPRINE
     Indication: IMMUNOGLOBULIN G4 RELATED DISEASE
     Route: 065

REACTIONS (1)
  - Influenza like illness [Unknown]
